FAERS Safety Report 12675021 (Version 2)
Quarter: 2016Q3

REPORT INFORMATION
  Report Type: Spontaneous
  Country: US (occurrence: US)
  Receive Date: 20160822
  Receipt Date: 20160826
  Transmission Date: 20161109
  Serious: Yes (Death, Hospitalization)
  Sender: FDA-Public Use
  Company Number: US-JNJFOC-20160817241

PATIENT
  Age: 82 Year
  Sex: Male

DRUGS (2)
  1. DARZALEX [Suspect]
     Active Substance: DARATUMUMAB
     Indication: PLASMA CELL MYELOMA
     Route: 042
  2. ACYCLOVIR. [Concomitant]
     Active Substance: ACYCLOVIR
     Route: 065

REACTIONS (12)
  - Infusion related reaction [Unknown]
  - Death [Fatal]
  - Depressed level of consciousness [Unknown]
  - Polymerase chain reaction positive [Unknown]
  - Aspiration [Unknown]
  - Hypersomnia [Unknown]
  - Secretion discharge [Unknown]
  - Delirium [Unknown]
  - Cytomegalovirus infection [Unknown]
  - Renal failure [Unknown]
  - Mental status changes [Unknown]
  - Pyrexia [Unknown]
